FAERS Safety Report 7683131 (Version 12)
Quarter: 2013Q3

REPORT INFORMATION
  Report Type: Spontaneous
  Country: US (occurrence: US)
  Receive Date: 20101125
  Receipt Date: 20130902
  Transmission Date: 20140515
  Serious: Yes (Hospitalization)
  Sender: FDA-Public Use
  Company Number: US-BIOGENIDEC-2010BI040461

PATIENT
  Age: 55 Year
  Sex: Female
  Weight: 99 kg

DRUGS (20)
  1. TYSABRI [Suspect]
     Indication: MULTIPLE SCLEROSIS
     Route: 042
     Dates: start: 20101026, end: 20101026
  2. HYZAAR [Concomitant]
  3. PROTONIX [Concomitant]
  4. AMBIEN [Concomitant]
  5. FLEXOR PAIN PATCH [Concomitant]
  6. VITAMIN B 12 [Concomitant]
  7. NAPROSYN [Concomitant]
  8. VIVELLE [Concomitant]
  9. DETROL LA [Concomitant]
  10. LASIX [Concomitant]
  11. VITAMIN D [Concomitant]
  12. SCOPOLAMINE PATCH [Concomitant]
  13. DRAMAMINE [Concomitant]
  14. MOTRIN [Concomitant]
  15. DARVOCET [Concomitant]
  16. CLARITIN [Concomitant]
  17. MUCINEX [Concomitant]
  18. SEREVENT INHALER [Concomitant]
  19. CORRECTOL [Concomitant]
  20. PEPTO-BISMOL [Concomitant]

REACTIONS (14)
  - Intestinal obstruction [Unknown]
  - Herpes zoster [Recovered/Resolved]
  - Poor venous access [Recovered/Resolved]
  - Post herpetic neuralgia [Not Recovered/Not Resolved]
  - Dysuria [Not Recovered/Not Resolved]
  - Multiple sclerosis relapse [Unknown]
  - Dizziness [Not Recovered/Not Resolved]
  - Constipation [Recovered/Resolved]
  - Stress [Recovered/Resolved]
  - Fatigue [Recovered/Resolved]
  - Mobility decreased [Not Recovered/Not Resolved]
  - Foot fracture [Recovered/Resolved]
  - Cartilage injury [Recovered/Resolved]
  - Deafness unilateral [Not Recovered/Not Resolved]
